FAERS Safety Report 18693261 (Version 1)
Quarter: 2021Q1

REPORT INFORMATION
  Report Type: Spontaneous
  Country: FR (occurrence: FR)
  Receive Date: 20210104
  Receipt Date: 20210104
  Transmission Date: 20210419
  Serious: Yes (Death)
  Sender: FDA-Public Use
  Company Number: FR-ADIENNEP-2020AD000669

PATIENT
  Age: 57 Year
  Sex: Male
  Weight: 58 kg

DRUGS (16)
  1. BISOPROLOL (FUMARATE DE) [Concomitant]
     Active Substance: BISOPROLOL FUMARATE
  2. VALACICLOVIR (CHLORHYDRATE DE) [Concomitant]
     Active Substance: VALACYCLOVIR HYDROCHLORIDE
  3. LASILIX [Concomitant]
     Active Substance: FUROSEMIDE
  4. CELLCEPT [Concomitant]
     Active Substance: MYCOPHENOLATE MOFETIL\MYCOPHENOLATE MOFETIL HYDROCHLORIDE
  5. FLUDARABINE TEVA [Suspect]
     Active Substance: FLUDARABINE PHOSPHATE
     Indication: BONE MARROW CONDITIONING REGIMEN
     Dosage: CYCLICAL?               ??????
     Route: 041
     Dates: start: 20191212, end: 20191223
  6. RAMIPRIL. [Concomitant]
     Active Substance: RAMIPRIL
  7. PREDNISONE. [Concomitant]
     Active Substance: PREDNISONE
     Indication: T-CELL LYMPHOMA
     Dosage: ()
     Route: 048
     Dates: start: 20190218, end: 20190616
  8. ENDOXAN 1000 MG, POUDRE POUR SOLUTION INJECTABLE [Suspect]
     Active Substance: CYCLOPHOSPHAMIDE
     Indication: T-CELL LYMPHOMA
     Dosage: CYCLICAL?               ??????
     Route: 041
     Dates: start: 20191212, end: 20191223
  9. CICLOSPORINE [Concomitant]
     Active Substance: CYCLOSPORINE
  10. KARDEGIC [Concomitant]
     Active Substance: ASPIRIN DL-LYSINE
  11. GABAPENTINE [Concomitant]
     Active Substance: GABAPENTIN
  12. DOXORUBICINE [Suspect]
     Active Substance: DOXORUBICIN
     Indication: T-CELL LYMPHOMA
     Dosage: ()
     Route: 041
     Dates: start: 20190218, end: 20190616
  13. BUSILVEX 6 MG/ML, SOLUTION A DILUER POUR PERFUSION [Suspect]
     Active Substance: BUSULFAN
     Indication: BONE MARROW CONDITIONING REGIMEN
     Dosage: CYCLICAL?               ??????
     Route: 041
     Dates: start: 20191212, end: 20191223
  14. BACTRIM [Concomitant]
     Active Substance: SULFAMETHOXAZOLE\TRIMETHOPRIM
  15. ALDACTONE [Concomitant]
     Active Substance: SPIRONOLACTONE
  16. TEPADINA [Suspect]
     Active Substance: THIOTEPA
     Indication: BONE MARROW CONDITIONING REGIMEN
     Dosage: CYCLICAL?               ??????
     Route: 041
     Dates: start: 20191212, end: 20191223

REACTIONS (1)
  - Congestive cardiomyopathy [Fatal]

NARRATIVE: CASE EVENT DATE: 202001
